FAERS Safety Report 20692345 (Version 8)
Quarter: 2022Q3

REPORT INFORMATION
  Report Type: Report from Study
  Country: CO (occurrence: CO)
  Receive Date: 20220409
  Receipt Date: 20220919
  Transmission Date: 20221027
  Serious: Yes (Disabling, Other)
  Sender: FDA-Public Use
  Company Number: CO-BRISTOL-MYERS SQUIBB COMPANY-2022-015452

PATIENT
  Age: 59 Year
  Sex: Female
  Weight: 73 kg

DRUGS (9)
  1. PACLITAXEL [Suspect]
     Active Substance: PACLITAXEL
     Indication: Breast cancer
     Dosage: PRIOR TO THE ONSET OF THE EVENT, THE PATIENT RECEIVED HER MOST RECENT DOSE ON 30-JUN-2021
     Route: 042
     Dates: start: 20210416
  2. LETROZOLE [Suspect]
     Active Substance: LETROZOLE
     Indication: Breast cancer
     Dosage: 16-DEC-2021 TO 12-JAN-2022?PRIOR TO THE ONSET OF THE EVENT, THE PATIENT RECEIVED HER MOST RECENT DOS
     Route: 048
     Dates: start: 20211216
  3. DOXORUBICIN HYDROCHLORIDE [Suspect]
     Active Substance: DOXORUBICIN HYDROCHLORIDE
     Indication: Breast cancer
     Dosage: PRIOR TO THE ONSET OF THE EVENT, THE PATIENT RECEIVED HER MOST RECENT DOSE OF 80.1 MG ON 09-SEP-2021
     Route: 042
     Dates: start: 20210708
  4. CYCLOPHOSPHAMIDE [Suspect]
     Active Substance: CYCLOPHOSPHAMIDE
     Indication: Breast cancer
     Dosage: PRIOR TO THE ONSET OF THE EVENT, THE PATIENT RECEIVED HER MOST RECENT DOSE OF 801 MG ON 09-SEP-2021
     Route: 042
     Dates: start: 20210708
  5. ALBUTEROL [Concomitant]
     Active Substance: ALBUTEROL
     Indication: Product used for unknown indication
     Dosage: 1 DF- 100 UNITS NOS
     Route: 055
     Dates: start: 20220301, end: 20220310
  6. INVESTIGATIONAL PRODUCT [Concomitant]
     Active Substance: INVESTIGATIONAL PRODUCT
     Indication: Prophylaxis
     Dosage: VACCINE COVID 19 CORONAVAC
     Route: 030
     Dates: start: 20210605, end: 20210605
  7. INVESTIGATIONAL PRODUCT [Concomitant]
     Active Substance: INVESTIGATIONAL PRODUCT
     Dosage: VACCINE COVID 19 CORONAVAC
     Route: 030
     Dates: start: 20210703, end: 20210703
  8. INVESTIGATIONAL PRODUCT [Concomitant]
     Active Substance: INVESTIGATIONAL PRODUCT
     Dosage: VACCINE COVID 19 PFIZER
     Route: 065
     Dates: start: 20220304, end: 20220304
  9. BECLOMETHASONE [Concomitant]
     Active Substance: BECLOMETHASONE
     Indication: Product used for unknown indication
     Dosage: BECLOMETHASONE SPRAY?1 DF- 100 UNITS NOS
     Route: 055
     Dates: start: 20220301, end: 20220310

REACTIONS (1)
  - Left ventricular failure [Unknown]

NARRATIVE: CASE EVENT DATE: 20220319
